FAERS Safety Report 9855752 (Version 4)
Quarter: 2014Q1

REPORT INFORMATION
  Report Type: Spontaneous
  Country: JP (occurrence: JP)
  Receive Date: 20140130
  Receipt Date: 20140307
  Transmission Date: 20141002
  Serious: Yes (Other)
  Sender: FDA-Public Use
  Company Number: JP-UCBSA-083928

PATIENT
  Age: 12 Year
  Sex: Male
  Weight: 23.6 kg

DRUGS (10)
  1. E KEPPRA [Suspect]
     Indication: EPILEPSY
     Route: 048
     Dates: start: 20101228, end: 20110222
  2. E KEPPRA [Suspect]
     Indication: EPILEPSY
     Route: 048
     Dates: end: 20120124
  3. MYOCALM [Suspect]
     Indication: MYOCLONUS
     Dosage: SOLUTION 33.3%, 15 ML DAILY DOSE
     Route: 048
  4. EXCEGRAN [Concomitant]
     Indication: EPILEPSY
     Dosage: DAILY DOSE: 280 MG
     Route: 048
  5. PHENOBAL [Concomitant]
     Indication: EPILEPSY
     Dosage: DAILY DOSE: 100 MG
     Route: 048
  6. RIVOTRIL [Concomitant]
     Indication: EPILEPSY
     Dosage: DAILY DOSE: 3 MG
     Route: 048
  7. TERNELIN [Concomitant]
     Indication: EPILEPSY
     Dosage: DAILY DOSE: 2.5 MG
     Route: 048
  8. TERNELIN [Concomitant]
     Indication: EPILEPSY
     Dosage: DAILY DOSE: 3 MG
     Route: 048
  9. TERNELIN [Concomitant]
     Indication: EPILEPSY
     Dosage: DAILY DOSE:9 MG
     Route: 048
  10. TIZANIDINE [Concomitant]
     Route: 048

REACTIONS (3)
  - Respiratory depression [Recovering/Resolving]
  - Urinary retention [Recovered/Resolved]
  - Drug ineffective [Recovered/Resolved]
